FAERS Safety Report 6803011-1 (Version None)
Quarter: 2010Q2

REPORT INFORMATION
  Report Type: 
  Country: None (occurrence: None)
  Receive Date: 20100628
  Receipt Date: 20100616
  Transmission Date: 20101027
  Serious: Yes (Hospitalization)
  Sender: FDA-Public Use
  Company Number: US-PFIZER INC-2010050061

PATIENT
  Sex: Male

DRUGS (5)
  1. CELEBREX [Suspect]
     Indication: PAIN
     Dosage: 200 MG, 2X/DAY
     Route: 048
     Dates: start: 20080101
  2. CELEBREX [Suspect]
     Dosage: 200 MG, 2X/DAY
     Dates: start: 20100410
  3. ATENOLOL [Concomitant]
     Dosage: 50 MG, UNK
  4. AMBIEN [Concomitant]
     Dosage: 10 MG, UNK
  5. TYLENOL [Concomitant]
     Dosage: UNK

REACTIONS (4)
  - CARDIAC DISORDER [None]
  - HYPERSENSITIVITY [None]
  - NAUSEA [None]
  - SWELLING FACE [None]
